FAERS Safety Report 4719935-5 (Version None)
Quarter: 2005Q3

REPORT INFORMATION
  Report Type: 
  Country: None (occurrence: None)
  Receive Date: 20050721
  Receipt Date: 20050131
  Transmission Date: 20060218
  Serious: No
  Sender: FDA-Public Use
  Company Number: US-GLAXOSMITHKLINE-A0543083A

PATIENT
  Age: 77 Year
  Sex: Female

DRUGS (5)
  1. AVANDIA [Suspect]
     Dosage: 4MG PER DAY
     Route: 048
     Dates: start: 20041201, end: 20041231
  2. GLYBURIDE [Concomitant]
  3. TAMOXIFEN CITRATE [Concomitant]
  4. VASOTEC RPD [Concomitant]
  5. SYNTHROID [Concomitant]

REACTIONS (2)
  - INSOMNIA [None]
  - SWELLING FACE [None]
